FAERS Safety Report 11026536 (Version 1)
Quarter: 2015Q2

REPORT INFORMATION
  Report Type: Spontaneous
  Country: US (occurrence: US)
  Receive Date: 20150414
  Receipt Date: 20150414
  Transmission Date: 20150821
  Serious: No
  Sender: FDA-Public Use
  Company Number: US-BAYER-2015-054068

PATIENT
  Age: 68 Year
  Sex: Female

DRUGS (1)
  1. FINACEA [Suspect]
     Active Substance: AZELAIC ACID
     Indication: ROSACEA
     Dosage: APPLY TWICE A DAY TO FACE.
     Route: 061

REACTIONS (2)
  - Skin discolouration [None]
  - Incorrect drug administration duration [None]
